FAERS Safety Report 26193843 (Version 1)
Quarter: 2025Q4

REPORT INFORMATION
  Report Type: Spontaneous
  Country: None (occurrence: BR)
  Receive Date: 20251224
  Receipt Date: 20251224
  Transmission Date: 20260119
  Serious: Yes (Other)
  Sender: ULTRAGENYX PHARMACEUTICAL
  Company Number: BR-ULTRAGENYX PHARMACEUTICAL INC.-BR-UGX-25-02482

PATIENT
  Sex: Male

DRUGS (1)
  1. MEPSEVII [Suspect]
     Active Substance: VESTRONIDASE ALFA-VJBK
     Indication: Product used for unknown indication
     Dosage: UNK

REACTIONS (1)
  - Spinal cord compression [Unknown]
